FAERS Safety Report 25503008 (Version 1)
Quarter: 2025Q3

REPORT INFORMATION
  Report Type: Spontaneous
  Country: US (occurrence: US)
  Receive Date: 20250702
  Receipt Date: 20250702
  Transmission Date: 20251021
  Serious: No
  Sender: LEO PHARM
  Company Number: US-LEO Pharma-381040

PATIENT
  Age: 24 Year
  Sex: Male

DRUGS (1)
  1. ADBRY [Suspect]
     Active Substance: TRALOKINUMAB-LDRM
     Indication: Dermatitis atopic
     Dosage: .
     Dates: start: 202411

REACTIONS (2)
  - Nausea [Unknown]
  - Food allergy [Unknown]

NARRATIVE: CASE EVENT DATE: 20250501
